FAERS Safety Report 16678027 (Version 19)
Quarter: 2020Q3

REPORT INFORMATION
  Report Type: Report from Study
  Country: US (occurrence: US)
  Receive Date: 20190807
  Receipt Date: 20200810
  Transmission Date: 20201102
  Serious: Yes (Hospitalization)
  Sender: FDA-Public Use
  Company Number: US-ACTELION-A-NJ2019-192525

PATIENT
  Age: 85 Year
  Sex: Male
  Weight: 80.27 kg

DRUGS (14)
  1. ORENITRAM [Suspect]
     Active Substance: TREPROSTINIL
     Dosage: 1.5 MG
     Route: 048
  2. ELIQUIS [Concomitant]
     Active Substance: APIXABAN
  3. ORENITRAM [Suspect]
     Active Substance: TREPROSTINIL
     Indication: PRODUCT USED FOR UNKNOWN INDICATION
     Dosage: 1.0 MG, TID
     Route: 048
  4. ORENITRAM [Suspect]
     Active Substance: TREPROSTINIL
     Dosage: 0.87 MG, TID
     Route: 048
  5. ORENITRAM [Suspect]
     Active Substance: TREPROSTINIL
     Dosage: 0.5 MG
     Route: 048
  6. ORENITRAM [Suspect]
     Active Substance: TREPROSTINIL
     Dosage: 0.675 MG
     Route: 048
     Dates: start: 20200317
  7. OPSUMIT [Suspect]
     Active Substance: MACITENTAN
     Indication: PULMONARY ARTERIAL HYPERTENSION
     Dosage: 10 MG, QD
     Route: 048
     Dates: start: 20180918
  8. ORENITRAM [Suspect]
     Active Substance: TREPROSTINIL
     Dosage: 1.375 MG
     Route: 048
     Dates: start: 20200427
  9. ORENITRAM [Suspect]
     Active Substance: TREPROSTINIL
     Dosage: 1.125 MG
     Route: 048
  10. ORENITRAM [Suspect]
     Active Substance: TREPROSTINIL
     Dosage: 0.625 MG
     Route: 048
  11. ORENITRAM [Suspect]
     Active Substance: TREPROSTINIL
     Dosage: 1.625 MG, TID
     Route: 065
  12. ORENITRAM [Suspect]
     Active Substance: TREPROSTINIL
     Dosage: 1.675 MG, TID
     Route: 048
     Dates: start: 20200429
  13. ORENITRAM [Suspect]
     Active Substance: TREPROSTINIL
     Dosage: 1.25 MG, TID
     Route: 048
  14. SILDENAFIL CITRATE. [Concomitant]
     Active Substance: SILDENAFIL CITRATE

REACTIONS (20)
  - Hospitalisation [Unknown]
  - Oedema [Recovered/Resolved]
  - Joint swelling [Unknown]
  - Headache [Unknown]
  - Pruritus [Recovered/Resolved]
  - Hypotension [Recovered/Resolved]
  - Diarrhoea [Unknown]
  - Decreased appetite [Recovered/Resolved]
  - Blood glucose decreased [Recovered/Resolved]
  - Pneumonia [Unknown]
  - Secretion discharge [Unknown]
  - Cardiac disorder [Unknown]
  - Right ventricular failure [Unknown]
  - Fatigue [Unknown]
  - Vision blurred [Recovered/Resolved]
  - Nasal congestion [Unknown]
  - Oedema peripheral [Unknown]
  - Condition aggravated [Unknown]
  - Cardiac failure congestive [Unknown]
  - Pain in jaw [Unknown]

NARRATIVE: CASE EVENT DATE: 20200226
